FAERS Safety Report 6750493-X (Version None)
Quarter: 2010Q2

REPORT INFORMATION
  Report Type: 
  Country: None (occurrence: None)
  Receive Date: 20100601
  Receipt Date: 20100524
  Transmission Date: 20101027
  Serious: Yes (Hospitalization)
  Sender: FDA-Public Use
  Company Number: AU-ABBOTT-10P-008-0646527-00

PATIENT
  Sex: Female
  Weight: 75 kg

DRUGS (1)
  1. REDUCTIL [Suspect]
     Indication: DRUG USE FOR UNKNOWN INDICATION
     Dates: start: 20090815, end: 20090914

REACTIONS (2)
  - ACUTE PSYCHOSIS [None]
  - DELUSION [None]
